FAERS Safety Report 23651347 (Version 3)
Quarter: 2024Q2

REPORT INFORMATION
  Report Type: Other
  Country: US (occurrence: None)
  Receive Date: 20240320
  Receipt Date: 20240516
  Transmission Date: 20240716
  Serious: Yes (Hospitalization, Disabling)
  Sender: FDA-Public Use
  Company Number: US-ROCHE-3523782

PATIENT
  Age: 71 Year
  Sex: Female
  Weight: 127.12 kg

DRUGS (3)
  1. OCREVUS [Suspect]
     Active Substance: OCRELIZUMAB
     Indication: Primary progressive multiple sclerosis
     Dosage: YES; DATE OF TREATMENT: 28/MAR/2018, 11/APR/2018, 10/OCT/2018, 01/NOV/2019, 01/MAY/2020, 02/NOV/2020
     Route: 042
     Dates: start: 2016
  2. OCREVUS [Suspect]
     Active Substance: OCRELIZUMAB
     Route: 042
     Dates: start: 20191202, end: 20201202
  3. SOLU-MEDROL [Concomitant]
     Active Substance: METHYLPREDNISOLONE SODIUM SUCCINATE

REACTIONS (5)
  - COVID-19 pneumonia [Recovered/Resolved]
  - Bedridden [Not Recovered/Not Resolved]
  - Mobility decreased [Not Recovered/Not Resolved]
  - Muscular weakness [Not Recovered/Not Resolved]
  - Gait disturbance [Not Recovered/Not Resolved]

NARRATIVE: CASE EVENT DATE: 20200101
